FAERS Safety Report 12909334 (Version 3)
Quarter: 2017Q1

REPORT INFORMATION
  Report Type: Report from Study
  Country: AT (occurrence: AT)
  Receive Date: 20161104
  Receipt Date: 20170329
  Transmission Date: 20170428
  Serious: Yes (Death)
  Sender: FDA-Public Use
  Company Number: AT-ROCHE-1849235

PATIENT
  Age: 10 Year
  Sex: Male
  Weight: 37.5 kg

DRUGS (12)
  1. CELECOXIB. [Suspect]
     Active Substance: CELECOXIB
     Indication: BRAIN NEOPLASM MALIGNANT
     Dosage: DATE OF LAST DOSE PRIOR TO SAE: 28/OCT/2016.
     Route: 048
     Dates: start: 20160101
  2. CYCLOPHOSPHAMIDE. [Suspect]
     Active Substance: CYCLOPHOSPHAMIDE
     Indication: BRAIN NEOPLASM MALIGNANT
     Dosage: DATE OF LAST DOSE PRIOR TO SAE: 25/AUG/2016.
     Route: 048
     Dates: start: 20160101
  3. EUSAPRIM (AUSTRIA) [Concomitant]
     Indication: PROPHYLAXIS
     Dosage: (MONDAY-FRIDAY)
     Route: 048
     Dates: start: 20160104
  4. BEVACIZUMAB [Suspect]
     Active Substance: BEVACIZUMAB
     Indication: BRAIN NEOPLASM MALIGNANT
     Dosage: DATE OF LAST DOSE PRIOR TO SAE: 28/OCT/2016.
     Route: 042
     Dates: start: 20160101
  5. FRISIUM [Concomitant]
     Active Substance: CLOBAZAM
     Indication: EPILEPSY
     Route: 048
     Dates: start: 20151224
  6. THYREX [Concomitant]
     Active Substance: LEVOTHYROXINE SODIUM
     Indication: HYPOTHYROIDISM
     Route: 048
     Dates: start: 20160113
  7. THALIDOMIDE [Suspect]
     Active Substance: THALIDOMIDE
     Indication: BRAIN NEOPLASM MALIGNANT
     Dosage: DATE OF LAST DOSE PRIOR TO SAE: 28/OCT/2016.
     Route: 048
     Dates: start: 20160101
  8. ETOPOSIDE. [Suspect]
     Active Substance: ETOPOSIDE
     Indication: BRAIN NEOPLASM MALIGNANT
     Dosage: DATE OF LAST DOSE PRIOR TO SAE: 28/OCT/2016.
     Route: 037
     Dates: start: 20160101
  9. FENOFIBRATE. [Suspect]
     Active Substance: FENOFIBRATE
     Indication: BRAIN NEOPLASM MALIGNANT
     Dosage: DATE OF LAST DOSE PRIOR TO SAE: 28/OCT/2016.
     Route: 048
     Dates: start: 20160101
  10. ETOPOSIDE. [Suspect]
     Active Substance: ETOPOSIDE
     Dosage: DATE OF LAST DOSE PRIOR TO SAE: 24/SEP/2016.
     Route: 048
  11. LIPOSOMAL CYTARABINE [Suspect]
     Active Substance: CYTARABINE
     Indication: BRAIN NEOPLASM MALIGNANT
     Dosage: DATE OF LAST DOSE PRIOR TO SAE: 28/OCT/2016.
     Route: 037
     Dates: start: 20160101
  12. LEVEBON [Concomitant]
     Indication: EPILEPSY
     Route: 048
     Dates: start: 20151224

REACTIONS (1)
  - Acute myeloid leukaemia [Fatal]

NARRATIVE: CASE EVENT DATE: 20161028
